FAERS Safety Report 5389027-3 (Version None)
Quarter: 2007Q3

REPORT INFORMATION
  Report Type: 
  Country: None (occurrence: None)
  Receive Date: 20070717
  Receipt Date: 20070706
  Transmission Date: 20080115
  Serious: Yes (Life-Threatening, Hospitalization)
  Sender: FDA-Public Use
  Company Number: JP-JNJFOC-20061003376

PATIENT
  Sex: Female
  Weight: 51 kg

DRUGS (12)
  1. REMICADE [Suspect]
     Route: 042
  2. REMICADE [Suspect]
     Route: 042
  3. REMICADE [Suspect]
     Indication: RHEUMATOID ARTHRITIS
     Route: 042
  4. PREDNISOLONE [Suspect]
     Indication: RHEUMATOID ARTHRITIS
     Route: 048
  5. RHEUMATREX [Suspect]
     Indication: RHEUMATOID ARTHRITIS
     Route: 048
  6. CLARITHROMYCIN [Concomitant]
     Indication: CHRONIC SINUSITIS
     Route: 048
  7. HYPEN [Concomitant]
     Route: 048
  8. HYPEN [Concomitant]
     Indication: RHEUMATOID ARTHRITIS
     Route: 048
  9. CYTOTEC [Concomitant]
     Route: 048
  10. CYTOTEC [Concomitant]
     Indication: RHEUMATOID ARTHRITIS
     Route: 048
  11. ALFAROL [Concomitant]
     Indication: OSTEOPOROSIS
     Route: 048
  12. GASTER [Concomitant]
     Indication: ABDOMINAL PAIN UPPER
     Route: 048

REACTIONS (1)
  - PNEUMOCYSTIS JIROVECI PNEUMONIA [None]
